FAERS Safety Report 23347832 (Version 1)
Quarter: 2023Q4

REPORT INFORMATION
  Report Type: Spontaneous
  Country: US (occurrence: None)
  Receive Date: 20231228
  Receipt Date: 20231228
  Transmission Date: 20240110
  Serious: Yes (Other)
  Sender: FDA-Public Use
  Company Number: None

PATIENT
  Age: 58 Year
  Sex: Female

DRUGS (1)
  1. EVEROLIMUS [Suspect]
     Active Substance: EVEROLIMUS
     Indication: Lung neoplasm malignant
     Dosage: FREQUENCY : DAILY;?
     Dates: start: 20230621

REACTIONS (1)
  - Hepatic neoplasm [None]

NARRATIVE: CASE EVENT DATE: 20231220
